FAERS Safety Report 6235086-5 (Version None)
Quarter: 2009Q2

REPORT INFORMATION
  Report Type: 
  Country: None (occurrence: None)
  Receive Date: 20090618
  Receipt Date: 20090615
  Transmission Date: 20091009
  Serious: Yes (Death)
  Sender: FDA-Public Use
  Company Number: PHHY2009BR23667

PATIENT
  Sex: Male

DRUGS (2)
  1. DIOVAN [Suspect]
  2. STARFORM [Suspect]
     Route: 048

REACTIONS (1)
  - DEATH [None]
